FAERS Safety Report 21789121 (Version 3)
Quarter: 2023Q2

REPORT INFORMATION
  Report Type: Spontaneous
  Country: ES (occurrence: ES)
  Receive Date: 20221228
  Receipt Date: 20230426
  Transmission Date: 20230722
  Serious: No
  Sender: FDA-Public Use
  Company Number: ES-BAXTER-2022BAX031253

PATIENT
  Age: 50 Year
  Sex: Male
  Weight: 108 kg

DRUGS (12)
  1. DOXORUBICIN [Suspect]
     Active Substance: DOXORUBICIN
     Indication: Peripheral T-cell lymphoma unspecified stage IV
     Dosage: 6 CYCLES (CHOEP)
     Route: 065
  2. CYCLOPHOSPHAMIDE [Concomitant]
     Active Substance: CYCLOPHOSPHAMIDE
     Indication: Peripheral T-cell lymphoma unspecified stage IV
     Dosage: 6 CYCLES (CHOEP)
     Route: 065
  3. MELPHALAN [Concomitant]
     Active Substance: MELPHALAN
     Indication: Bone marrow conditioning regimen
     Dosage: 296 MG FOR 1 DAY, 6 CYCLES (BEAM REGIMEN)
     Route: 065
     Dates: start: 2020, end: 2020
  4. ETOPOSIDE [Concomitant]
     Active Substance: ETOPOSIDE
     Indication: Bone marrow conditioning regimen
     Dosage: 212 MG FOR 3 DAYS, 6 CYCLES (BEAM REGIMEN)
     Route: 065
     Dates: start: 2020, end: 2020
  5. ETOPOSIDE [Concomitant]
     Active Substance: ETOPOSIDE
     Indication: Peripheral T-cell lymphoma unspecified stage IV
     Dosage: 6 CYCLES (CHOEP)
     Route: 065
  6. METHOTREXATE [Concomitant]
     Active Substance: METHOTREXATE
     Indication: Peripheral T-cell lymphoma unspecified stage IV
     Dosage: TRIPLE INTRATHECAL THERAPY
     Route: 037
  7. VINCRISTINE [Concomitant]
     Active Substance: VINCRISTINE
     Indication: Peripheral T-cell lymphoma unspecified stage IV
     Dosage: 6 CYCLES (CHOEP)
     Route: 065
  8. CYTARABINE [Concomitant]
     Active Substance: CYTARABINE
     Indication: Bone marrow conditioning regimen
     Dosage: 424 MG FOR 3 DAYS, 6 CYCLES (BEAM REGIMEN)
     Route: 065
     Dates: start: 2020, end: 2020
  9. CYTARABINE [Concomitant]
     Active Substance: CYTARABINE
     Indication: Peripheral T-cell lymphoma unspecified stage IV
     Dosage: TRIPLE INTRATHECAL THERAPY
     Route: 037
  10. HYDROCORTISONE [Concomitant]
     Active Substance: HYDROCORTISONE
     Indication: Peripheral T-cell lymphoma unspecified stage IV
     Dosage: TRIPLE INTRATHECAL THERAPY
     Route: 037
  11. PREDNISONE [Concomitant]
     Active Substance: PREDNISONE
     Indication: Peripheral T-cell lymphoma unspecified stage IV
     Dosage: 6 CYCLES (CHOEP)
     Route: 065
  12. CARMUSTINE [Concomitant]
     Active Substance: CARMUSTINE
     Indication: Bone marrow conditioning regimen
     Dosage: CUMULATIVE DOSE= 1206 MG, 636 MG + 570 MG/MG SAME DAY (BEAM REGIMEN)
     Route: 065
     Dates: start: 2020

REACTIONS (1)
  - No adverse event [Recovered/Resolved]
